FAERS Safety Report 4404631-4 (Version None)
Quarter: 2004Q3

REPORT INFORMATION
  Report Type: 
  Country: None (occurrence: None)
  Receive Date: 20040721
  Receipt Date: 20040721
  Transmission Date: 20050211
  Serious: Yes (Hospitalization)
  Sender: FDA-Public Use
  Company Number: None

PATIENT
  Age: 77 Year
  Sex: Male

DRUGS (12)
  1. IBUPROFEN [Suspect]
     Indication: PAIN
  2. ASPIRIN [Suspect]
  3. NAPROSYN [Suspect]
  4. CITALOPRAM [Concomitant]
  5. DONEPEZIL HCL [Concomitant]
  6. DOXEPIN HCL [Concomitant]
  7. GLIPIZIDE [Concomitant]
  8. INSULIN [Concomitant]
  9. METFORMIN HCL [Concomitant]
  10. OXYBUTYNIN [Concomitant]
  11. SIMVASTATIN [Concomitant]
  12. TERAZOSIN HCL [Concomitant]

REACTIONS (3)
  - HAEMATEMESIS [None]
  - MEDICATION ERROR [None]
  - MELAENA [None]
